FAERS Safety Report 6757848-8 (Version None)
Quarter: 2010Q2

REPORT INFORMATION
  Report Type: 
  Country: None (occurrence: None)
  Receive Date: 20100607
  Receipt Date: 20100527
  Transmission Date: 20101027
  Serious: Yes (Life-Threatening, Hospitalization, Disabling, Other)
  Sender: FDA-Public Use
  Company Number: PHHO2008US05958

PATIENT
  Weight: 43.22 kg

DRUGS (27)
  1. CERTICAN [Suspect]
     Indication: RENAL TRANSPLANT
     Dosage: 1.0 MG, BID
     Route: 048
     Dates: start: 20041013, end: 20041013
  2. CERTICAN [Suspect]
     Dosage: 1.0 MG, BID
     Route: 048
     Dates: start: 20041014, end: 20050211
  3. CERTICAN [Suspect]
     Dosage: NO TREATMENT
     Dates: start: 20050212, end: 20050213
  4. CERTICAN [Suspect]
     Dosage: 1.0 MG, QD
     Route: 048
     Dates: start: 20050214, end: 20050214
  5. CERTICAN [Suspect]
     Dosage: 1.0 MG, BID
     Route: 048
     Dates: start: 20050215, end: 20080515
  6. NEORAL [Suspect]
     Dosage: 50 MG, BID
     Route: 048
     Dates: start: 20040303, end: 20080507
  7. PREDNISONE [Concomitant]
     Indication: IMMUNOSUPPRESSION
     Dosage: 10 MG, UNK
     Dates: start: 20000317
  8. ATENOLOL [Concomitant]
     Indication: HYPERTENSION
     Dosage: UNK
     Dates: start: 20070811
  9. CLONIDINE [Concomitant]
     Indication: HYPERTENSION
     Dosage: 0.1 MG, UNK
     Dates: start: 20060221
  10. COZAAR [Concomitant]
     Indication: HYPERTENSION
     Dosage: 12.5 MG, UNK
     Dates: start: 20040302
  11. FUROSEMIDE [Concomitant]
     Indication: HYPERTENSION
     Dosage: 40 MG, UNK
     Dates: start: 20070811
  12. FUROSEMIDE [Concomitant]
     Dosage: 80 MG, UNK
  13. BACTRIM [Concomitant]
     Indication: ANTI-INFECTIVE THERAPY
     Dosage: 1 DF, UNK
     Dates: start: 20070205
  14. GLIPIZIDE [Concomitant]
     Indication: DIABETES MELLITUS
     Dosage: 10 MG, UNK
     Dates: start: 20070205
  15. HUMALOG [Concomitant]
     Indication: TYPE 1 DIABETES MELLITUS
     Dosage: 5 IU, UNK
     Dates: start: 20070215
  16. INSULIN [Concomitant]
     Indication: TYPE 1 DIABETES MELLITUS
     Dosage: 65 IU, UNK
     Dates: start: 20050215
  17. OMEPRAZOLE [Concomitant]
     Indication: PROPHYLAXIS
     Dosage: 20 MG, UNK
     Dates: start: 20060911
  18. ALLOPURINOL [Concomitant]
     Indication: METABOLIC DISORDER
     Dosage: 200 MG, UNK
     Dates: start: 20060911
  19. ATORVASTATIN [Concomitant]
     Indication: METABOLIC DISORDER
     Dosage: 30 MG, UNK
     Dates: start: 20070811
  20. LOPID [Concomitant]
     Indication: METABOLIC DISORDER
     Dosage: 600 MG, UNK
     Dates: start: 20070205
  21. OSCAL [Concomitant]
     Indication: METABOLIC DISORDER
     Dosage: 1800 MG, UNK
     Dates: start: 20040713
  22. SYNTHROID [Concomitant]
     Indication: METABOLIC DISORDER
     Dosage: 75 UNK, UNK
     Dates: start: 20040901
  23. CLOPIDOGREL [Concomitant]
     Indication: ANTIPLATELET THERAPY
     Dosage: 75 MG, UNK
     Dates: start: 20060911
  24. PROCRIT [Concomitant]
     Dosage: 10000 MG, UNK
     Dates: start: 20070811
  25. FERROUS SULFATE TAB [Concomitant]
     Indication: SUPPLEMENTATION THERAPY
     Dosage: 325 MG, UNK
     Dates: start: 20070811
  26. MULTIVITAMIN ^LAPPE^ [Concomitant]
     Indication: VITAMIN SUPPLEMENTATION
     Dosage: 1 DF, UNK
     Dates: start: 19990209
  27. VITAMIN C [Concomitant]
     Indication: VITAMIN SUPPLEMENTATION
     Dosage: 500 MG, UNK
     Dates: start: 20060911

REACTIONS (16)
  - ATRIAL FIBRILLATION [None]
  - BLOOD CREATININE INCREASED [None]
  - CEREBRAL INFARCTION [None]
  - GRAFT LOSS [None]
  - HAEMATURIA [None]
  - HAEMODIALYSIS [None]
  - HYPOTENSION [None]
  - HYPOVOLAEMIC SHOCK [None]
  - PNEUMONIA [None]
  - RENAL FAILURE [None]
  - RENAL TUBULAR NECROSIS [None]
  - RESPIRATORY ARREST [None]
  - RESPIRATORY DISTRESS [None]
  - RETROPERITONEAL HAEMORRHAGE [None]
  - SEPTIC SHOCK [None]
  - THERAPEUTIC EMBOLISATION [None]
